FAERS Safety Report 14218448 (Version 2)
Quarter: 2017Q4

REPORT INFORMATION
  Report Type: Spontaneous
  Country: US (occurrence: US)
  Receive Date: 20171123
  Receipt Date: 20171214
  Transmission Date: 20180321
  Serious: Yes (Death, Hospitalization, Other)
  Sender: FDA-Public Use
  Company Number: US-009507513-1711USA008030

PATIENT
  Age: 59 Year
  Sex: Female

DRUGS (2)
  1. INTRON A [Suspect]
     Active Substance: INTERFERON ALFA-2B
     Indication: MYCOSIS FUNGOIDES
     Dosage: 0.05 ML, TIW, STRENGTH 10MMU/ML
     Route: 058
     Dates: start: 20151218, end: 201707
  2. BEXAROTENE. [Concomitant]
     Active Substance: BEXAROTENE
     Dosage: UNK

REACTIONS (3)
  - Sepsis [Unknown]
  - Mycosis fungoides [Unknown]
  - Death [Fatal]

NARRATIVE: CASE EVENT DATE: 2017
